FAERS Safety Report 4330463-1 (Version None)
Quarter: 2004Q2

REPORT INFORMATION
  Report Type: 
  Country: None (occurrence: None)
  Receive Date: 20040401
  Receipt Date: 20040401
  Transmission Date: 20050107
  Serious: Yes (Death)
  Sender: FDA-Public Use
  Company Number: None

PATIENT
  Age: 80 Year
  Sex: Male
  Weight: 76.6579 kg

DRUGS (1)
  1. VIAGRA [Suspect]

REACTIONS (3)
  - CIRCULATORY COLLAPSE [None]
  - COUGH [None]
  - VENTRICULAR FIBRILLATION [None]
